FAERS Safety Report 8242568-3 (Version None)
Quarter: 2012Q1

REPORT INFORMATION
  Report Type: 
  Country: None (occurrence: None)
  Receive Date: 20120329
  Receipt Date: 20120323
  Transmission Date: 20120608
  Serious: Yes (Death)
  Sender: FDA-Public Use
  Company Number: PHHY2012VN024945

PATIENT
  Sex: Male

DRUGS (1)
  1. GLEEVEC [Suspect]
     Indication: GASTROINTESTINAL STROMAL TUMOUR
     Dosage: 400 MG, DAILY
     Route: 048
     Dates: start: 20100101

REACTIONS (4)
  - NEOPLASM MALIGNANT [None]
  - BILE DUCT OBSTRUCTION [None]
  - METASTASES TO LIVER [None]
  - NEOPLASM PROGRESSION [None]
